FAERS Safety Report 14258450 (Version 1)
Quarter: 2017Q4

REPORT INFORMATION
  Report Type: Spontaneous
  Country: US (occurrence: US)
  Receive Date: 20171206
  Receipt Date: 20171206
  Transmission Date: 20180321
  Serious: Yes (Other)
  Sender: FDA-Public Use
  Company Number: None

PATIENT
  Age: 49 Year
  Sex: Female
  Weight: 121.5 kg

DRUGS (5)
  1. METHYLPRED PAK [Concomitant]
  2. LEVOFLOXACIN 750 MG [Suspect]
     Active Substance: LEVOFLOXACIN
     Indication: BRONCHITIS
     Dosage: ?          QUANTITY:1 TABLET(S);?
     Route: 048
     Dates: start: 20171128, end: 20171204
  3. NEBULIZER [Concomitant]
     Active Substance: DEVICE
  4. ALBUTEROL. [Concomitant]
     Active Substance: ALBUTEROL
  5. IBUPROFEN/TYLENOL [Concomitant]

REACTIONS (7)
  - Diarrhoea [None]
  - Flatulence [None]
  - Haematochezia [None]
  - Pain [None]
  - Arthralgia [None]
  - Abdominal distension [None]
  - Feeling abnormal [None]

NARRATIVE: CASE EVENT DATE: 20171203
